FAERS Safety Report 8746325 (Version 3)
Quarter: 2012Q4

REPORT INFORMATION
  Report Type: 
  Country: JP (occurrence: JP)
  Receive Date: 20120827
  Receipt Date: 20121005
  Transmission Date: 20130627
  Serious: Yes (Death, Other)
  Sender: FDA-Public Use
  Company Number: JP-JNJFOC-20120809291

PATIENT
  Age: 75 Year
  Sex: Female

DRUGS (7)
  1. DUROTEP MT [Suspect]
     Indication: CANCER PAIN
     Route: 062
     Dates: start: 20120807, end: 20120807
  2. GASMOTIN [Concomitant]
     Route: 048
  3. MAGMITT [Concomitant]
     Route: 048
  4. TAKEPRON [Concomitant]
     Route: 048
  5. LENDORMIN [Concomitant]
     Route: 048
  6. FOSFOMYCIN CALCIUM [Concomitant]
     Route: 065
  7. PREDONINE [Concomitant]
     Route: 065

REACTIONS (1)
  - Respiratory depression [Fatal]
